FAERS Safety Report 12110576 (Version 1)
Quarter: 2016Q1

REPORT INFORMATION
  Report Type: Spontaneous
  Country: CA (occurrence: CA)
  Receive Date: 20160224
  Receipt Date: 20160224
  Transmission Date: 20160526
  Serious: Yes (Other)
  Sender: FDA-Public Use
  Company Number: CA-GALDERMA-CA16001068

PATIENT
  Age: 33 Year
  Sex: Female
  Weight: 49.94 kg

DRUGS (3)
  1. CLOBEX [Suspect]
     Active Substance: CLOBETASOL PROPIONATE
     Route: 061
     Dates: start: 2016
  2. CLOBEX [Suspect]
     Active Substance: CLOBETASOL PROPIONATE
     Indication: SEBORRHOEIC DERMATITIS
     Route: 061
     Dates: start: 20151002
  3. CLOBETASOL PROPIONATE SOLUTION [Suspect]
     Active Substance: CLOBETASOL PROPIONATE
     Indication: SEBORRHOEIC DERMATITIS
     Route: 061
     Dates: start: 2015

REACTIONS (21)
  - Thirst [Unknown]
  - Urine output increased [Unknown]
  - Weight decreased [Unknown]
  - Condition aggravated [Unknown]
  - Pain of skin [Not Recovered/Not Resolved]
  - Intentional product use issue [Unknown]
  - Intentional product misuse [Unknown]
  - Headache [Unknown]
  - Increased appetite [Unknown]
  - Sluggishness [Unknown]
  - Hair disorder [Unknown]
  - Product use issue [Unknown]
  - Type 1 diabetes mellitus [Unknown]
  - Halo vision [Unknown]
  - Fatigue [Unknown]
  - Mood swings [Unknown]
  - Fungal infection [Unknown]
  - Dry eye [Unknown]
  - Pruritus [Not Recovered/Not Resolved]
  - Dry skin [Not Recovered/Not Resolved]
  - Depressed mood [Unknown]

NARRATIVE: CASE EVENT DATE: 2015
